FAERS Safety Report 8960742 (Version 2)
Quarter: 2013Q1

REPORT INFORMATION
  Report Type: Spontaneous
  Country: IT (occurrence: None)
  Receive Date: 20121130
  Receipt Date: 20121205
  Transmission Date: 20140127
  Serious: Yes (Hospitalization)
  Sender: FDA-Public Use
  Company Number: AUR-APL-2012-05045

PATIENT
  Age: 47 Year
  Sex: Female

DRUGS (2)
  1. RAMIPRIL [Suspect]
     Indication: HYPERTENSION
     Dosage: (, 1 IN  1D)
     Route: 048
     Dates: start: 20121008, end: 20121010
  2. AMOXICILLIN AND CLAVULANIC ACID [Suspect]
     Indication: COUGH
     Dosage: ( 1 DOSAGE FORMS, TOTAL),ORAL
     Route: 048
     Dates: start: 20121010, end: 20121010

REACTIONS (4)
  - Malaise [None]
  - Hyperhidrosis [None]
  - Hypoaesthesia [None]
  - Nausea [None]
